FAERS Safety Report 22586221 (Version 3)
Quarter: 2023Q2

REPORT INFORMATION
  Report Type: Spontaneous
  Country: US (occurrence: US)
  Receive Date: 20230610
  Receipt Date: 20230614
  Transmission Date: 20230722
  Serious: No
  Sender: FDA-Public Use
  Company Number: US-002147023-NVSC2023US131992

PATIENT
  Sex: Female

DRUGS (3)
  1. TEGRETOL XR [Suspect]
     Active Substance: CARBAMAZEPINE
     Indication: Product used for unknown indication
     Dosage: 800 MG, QD (400 AND 400 MG AT NIGHT)
     Route: 065
  2. TEGRETOL XR [Suspect]
     Active Substance: CARBAMAZEPINE
     Dosage: UNK (STARTED IN 2023)
     Route: 065
  3. SEROQUEL [Concomitant]
     Active Substance: QUETIAPINE FUMARATE
     Indication: Product used for unknown indication
     Dosage: 400 MG
     Route: 065

REACTIONS (1)
  - Weight increased [Unknown]
